FAERS Safety Report 7869766-2 (Version None)
Quarter: 2011Q4

REPORT INFORMATION
  Report Type: 
  Country: None (occurrence: None)
  Receive Date: 20111028
  Receipt Date: 20111028
  Transmission Date: 20120403
  Serious: No
  Sender: FDA-Public Use
  Company Number: None

PATIENT
  Age: 33 Year
  Sex: Female

DRUGS (1)
  1. SENSIPAR [Suspect]
     Dosage: 60MG DAILY PO
     Route: 048
     Dates: start: 20080311, end: 20111024

REACTIONS (2)
  - TREMOR [None]
  - MUSCLE TWITCHING [None]
